FAERS Safety Report 14465561 (Version 3)
Quarter: 2018Q2

REPORT INFORMATION
  Report Type: Report from Study
  Country: None (occurrence: BR)
  Receive Date: 20180131
  Receipt Date: 20180412
  Transmission Date: 20180711
  Serious: Yes (Hospitalization, Other)
  Sender: FDA-Public Use
  Company Number: BR-ABBVIE-18K-020-2236752-00

PATIENT
  Age: 42 Year
  Sex: Female
  Weight: 46 kg

DRUGS (4)
  1. HUMIRA [Suspect]
     Active Substance: ADALIMUMAB
     Dosage: WEEK 2 LOADING DOSE
     Route: 058
     Dates: start: 2017, end: 2017
  2. PREDNISONE. [Concomitant]
     Active Substance: PREDNISONE
     Indication: CROHN^S DISEASE
  3. HUMIRA [Suspect]
     Active Substance: ADALIMUMAB
     Dosage: MAINTENANCE DOSE
     Route: 058
     Dates: start: 2017, end: 20171128
  4. HUMIRA [Suspect]
     Active Substance: ADALIMUMAB
     Indication: CROHN^S DISEASE
     Dosage: WEEK 0 LOADING DOSE
     Route: 058
     Dates: start: 20170921, end: 20170921

REACTIONS (6)
  - Musculoskeletal stiffness [Recovered/Resolved]
  - Groin pain [Recovered/Resolved]
  - Lymphadenopathy [Recovered/Resolved]
  - Gait disturbance [Recovered/Resolved]
  - Cellulitis [Recovered/Resolved]
  - Haemoglobin decreased [Recovering/Resolving]

NARRATIVE: CASE EVENT DATE: 201710
